FAERS Safety Report 8269733-3 (Version None)
Quarter: 2012Q2

REPORT INFORMATION
  Report Type: 
  Country: None (occurrence: None)
  Receive Date: 20120406
  Receipt Date: 20120328
  Transmission Date: 20120825
  Serious: Yes (Hospitalization)
  Sender: FDA-Public Use
  Company Number: TPA2012A01530

PATIENT
  Age: 54 Year
  Sex: Female
  Weight: 55.3388 kg

DRUGS (9)
  1. DEXILANT [Suspect]
     Indication: GASTROOESOPHAGEAL REFLUX DISEASE
     Dosage: 60 MG, 1 IN 1 D, PER ORAL 30MG,1IN1D, PER ORAL 30 MG, 2 IN1D, PER ORAL60MG,1IN1D,PE
     Route: 048
     Dates: start: 20120216, end: 20120309
  2. DEXILANT [Suspect]
     Indication: GASTROOESOPHAGEAL REFLUX DISEASE
     Dosage: 60 MG, 1 IN 1 D, PER ORAL 30MG,1IN1D, PER ORAL 30 MG, 2 IN1D, PER ORAL60MG,1IN1D,PE
     Route: 048
     Dates: start: 20120314, end: 20120315
  3. DEXILANT [Suspect]
     Indication: GASTROOESOPHAGEAL REFLUX DISEASE
     Dosage: 60 MG, 1 IN 1 D, PER ORAL 30MG,1IN1D, PER ORAL 30 MG, 2 IN1D, PER ORAL60MG,1IN1D,PE
     Route: 048
     Dates: start: 20120309, end: 20120314
  4. DEXILANT [Suspect]
     Indication: GASTROOESOPHAGEAL REFLUX DISEASE
     Dosage: 60 MG, 1 IN 1 D, PER ORAL 30MG,1IN1D, PER ORAL 30 MG, 2 IN1D, PER ORAL60MG,1IN1D,PE
     Route: 048
     Dates: start: 20120312, end: 20120315
  5. MULTIVITAMIN (ERGOCALCIFEROL, ASCORBIC ACID, PYRIDOXINE HYDROCHLORIDE, [Concomitant]
  6. UNKNOWN ANTIBIOTICS (ANTIBIOTICS) [Concomitant]
  7. METRONIDAZOLE [Concomitant]
  8. CIPRO [Concomitant]
  9. SUDAFED (OXYMETAZOLINE HYDROCHLORIDE) [Concomitant]

REACTIONS (8)
  - HAEMATOCHEZIA [None]
  - DIARRHOEA [None]
  - GASTROINTESTINAL INFLAMMATION [None]
  - LIVER FUNCTION TEST ABNORMAL [None]
  - ABDOMINAL PAIN [None]
  - DIZZINESS [None]
  - ASTHENIA [None]
  - GASTROINTESTINAL INFECTION [None]
